FAERS Safety Report 4810104-7 (Version None)
Quarter: 2005Q4

REPORT INFORMATION
  Report Type: 
  Country: None (occurrence: None)
  Receive Date: 20051024
  Receipt Date: 20051013
  Transmission Date: 20060501
  Serious: Yes (Life-Threatening)
  Sender: FDA-Public Use
  Company Number: 2005RR-00938

PATIENT
  Age: 63 Year
  Sex: Male

DRUGS (6)
  1. ASPIRIN [Suspect]
     Dosage: 75 MG, QD, ORAL
     Route: 048
  2. BENDROFLUAZIDE TABLET (BENDROFLUMETHIAZIDE) [Concomitant]
  3. AMLODIPINE [Concomitant]
  4. BISOPROLOL TABLET (BISOPROLOL FUMARATE) [Concomitant]
  5. TOCOPHEROL CONCENTRATE CAP [Concomitant]
  6. COENZYME Q10 [Concomitant]

REACTIONS (1)
  - GASTROINTESTINAL HAEMORRHAGE [None]
